FAERS Safety Report 24403970 (Version 2)
Quarter: 2024Q4

REPORT INFORMATION
  Report Type: Spontaneous
  Country: JP (occurrence: JP)
  Receive Date: 20241007
  Receipt Date: 20241009
  Transmission Date: 20250115
  Serious: Yes (Death, Hospitalization)
  Sender: NOVARTIS
  Company Number: JP-002147023-NVSJ2024JP011490

PATIENT
  Age: 80 Year
  Sex: Male

DRUGS (4)
  1. TAFINLAR [Suspect]
     Active Substance: DABRAFENIB MESYLATE
     Indication: Lung neoplasm malignant
     Dosage: UNK
     Route: 048
     Dates: start: 20240607
  2. TAFINLAR [Suspect]
     Active Substance: DABRAFENIB MESYLATE
     Indication: BRAF V600E mutation positive
  3. MEKINIST [Suspect]
     Active Substance: TRAMETINIB DIMETHYL SULFOXIDE
     Indication: Lung neoplasm malignant
     Dosage: UNK
     Route: 048
     Dates: start: 20240607
  4. MEKINIST [Suspect]
     Active Substance: TRAMETINIB DIMETHYL SULFOXIDE
     Indication: BRAF V600E mutation positive

REACTIONS (2)
  - Death [Fatal]
  - Encephalitis [Unknown]

NARRATIVE: CASE EVENT DATE: 20240801
